FAERS Safety Report 5585341-7 (Version None)
Quarter: 2008Q1

REPORT INFORMATION
  Report Type: 
  Country: None (occurrence: None)
  Receive Date: 20080104
  Receipt Date: 20080104
  Transmission Date: 20080703
  Serious: Yes (Hospitalization)
  Sender: FDA-Public Use
  Company Number: None

PATIENT
  Age: 78 Year
  Sex: Male
  Weight: 80 kg

DRUGS (1)
  1. METHOTREXATE [Suspect]
     Indication: MYCOSIS FUNGOIDES
     Dosage: 10150MG IV X 1
     Route: 042
     Dates: start: 20071031

REACTIONS (1)
  - BLOOD CREATININE INCREASED [None]
